FAERS Safety Report 12365086 (Version 1)
Quarter: 2016Q2

REPORT INFORMATION
  Report Type: Spontaneous
  Country: US (occurrence: None)
  Receive Date: 20160512
  Receipt Date: 20160512
  Transmission Date: 20160815
  Serious: Yes (Other)
  Sender: FDA-Public Use
  Company Number: None

PATIENT
  Age: 77 Year
  Sex: Male

DRUGS (1)
  1. AFINITOR [Suspect]
     Active Substance: EVEROLIMUS
     Indication: NEOPLASM MALIGNANT
     Dosage: 1 TABLET ONCE A DAY ORAL
     Route: 048
     Dates: start: 20160308, end: 20160311

REACTIONS (2)
  - Therapy cessation [None]
  - Adverse drug reaction [None]

NARRATIVE: CASE EVENT DATE: 20160511
